FAERS Safety Report 7571625-X (Version None)
Quarter: 2011Q2

REPORT INFORMATION
  Report Type: 
  Country: None (occurrence: None)
  Receive Date: 20110616
  Receipt Date: 20110518
  Transmission Date: 20111010
  Serious: Yes (Other)
  Sender: FDA-Public Use
  Company Number: 2011028857

PATIENT
  Age: 50 Year
  Sex: Female
  Weight: 79.3795 kg

DRUGS (31)
  1. HIZENTRA [Suspect]
     Indication: IMMUNODEFICIENCY COMMON VARIABLE
     Dosage: (13 G 1X/WEEK, 13 G (65 ML) WEEKLY VIA 3-4 SITES OVER 1-2 HOURS)
     Dates: start: 20110105
  2. VIVELLE-DOT [Concomitant]
  3. ACTONEL [Concomitant]
  4. BACTRIM [Concomitant]
  5. AMITRIPTYLINE HCL [Concomitant]
  6. HIZENTRA [Suspect]
  7. AMBIEN [Concomitant]
  8. ALDACTONE [Concomitant]
  9. PREDNISONE [Concomitant]
  10. THEOPHYLLINE [Concomitant]
  11. TRAZODONE HCL [Concomitant]
  12. LASIX [Concomitant]
  13. CYMBALTA [Concomitant]
  14. DOXYCYCLINE [Concomitant]
  15. ZOLOFT [Concomitant]
  16. AZITHROMYCIN [Concomitant]
  17. BUDESONIDE [Concomitant]
  18. ADVAIR DISKUS 100/50 [Concomitant]
  19. POTASSIUM (POTASSIUM) [Concomitant]
  20. BUMEX [Concomitant]
  21. DUONEB [Concomitant]
  22. PROTONIX [Concomitant]
  23. NAPROXEN [Concomitant]
  24. HIZENTRA [Suspect]
  25. SPIRIVA [Concomitant]
  26. ALLEGRA [Concomitant]
  27. HYDROCHLOROTHIAZIDE [Concomitant]
  28. VERAPAMIL [Concomitant]
  29. ACETAMINOPHEN [Concomitant]
  30. REGLAN [Concomitant]
  31. REQUIP [Concomitant]

REACTIONS (3)
  - RESPIRATORY TRACT INFECTION VIRAL [None]
  - SPUTUM DISCOLOURED [None]
  - HERPES VIRUS INFECTION [None]
